FAERS Safety Report 5130522-X (Version None)
Quarter: 2006Q4

REPORT INFORMATION
  Report Type: 
  Country: None (occurrence: None)
  Receive Date: 20061019
  Receipt Date: 20061018
  Transmission Date: 20070319
  Serious: Yes (Other)
  Sender: FDA-Public Use
  Company Number: US-GLAXOSMITHKLINE-A0623988A

PATIENT
  Age: 63 Year
  Sex: Female

DRUGS (1)
  1. NICODERM CQ [Suspect]
     Dosage: 7MG AS DIRECTED
     Route: 062

REACTIONS (2)
  - HALLUCINATION [None]
  - HEART RATE INCREASED [None]
